FAERS Safety Report 5235449-0 (Version None)
Quarter: 2007Q1

REPORT INFORMATION
  Report Type: 
  Country: None (occurrence: None)
  Receive Date: 20070207
  Receipt Date: 20070207
  Transmission Date: 20070707
  Serious: No
  Sender: FDA-Public Use
  Company Number: None

PATIENT
  Sex: Female
  Weight: 61 kg

DRUGS (12)
  1. TAXOL [Suspect]
     Indication: BREAST CANCER
     Dosage: 285 MG
  2. ARANESP [Suspect]
     Dosage: 200MCG SQ Q 2 WEEKS
     Route: 058
  3. ASPIRIN [Suspect]
     Dosage: 81 MG DAILY
  4. FEOSOL [Suspect]
     Dosage: DAILY
  5. ARANESP [Concomitant]
  6. ASPIRIN [Concomitant]
  7. FEOSOL [Concomitant]
  8. HYDROCHLOROTHIAZIDE [Concomitant]
  9. HUMALOG [Concomitant]
  10. LASIX [Concomitant]
  11. LISINOPRIL [Concomitant]
  12. MULTI-VITAMIN [Concomitant]

REACTIONS (6)
  - ANAEMIA [None]
  - ASPARTATE AMINOTRANSFERASE INCREASED [None]
  - BLOOD GLUCOSE INCREASED [None]
  - DRUG TOXICITY [None]
  - MENORRHAGIA [None]
  - RENAL FAILURE CHRONIC [None]
